FAERS Safety Report 4602181-3 (Version None)
Quarter: 2005Q2

REPORT INFORMATION
  Report Type: 
  Country: None (occurrence: None)
  Receive Date: 20050215
  Receipt Date: 20041004
  Transmission Date: 20051028
  Serious: Yes (Hospitalization)
  Sender: FDA-Public Use
  Company Number: MC200400625

PATIENT
  Sex: Male

DRUGS (5)
  1. ANGIOMAX [Suspect]
  2. VASOTEC [Concomitant]
  3. CONTRAST MEDIA [Concomitant]
  4. VERSED [Concomitant]
  5. FENTANYL [Concomitant]

REACTIONS (3)
  - CEREBROVASCULAR ACCIDENT [None]
  - RASH [None]
  - URTICARIA [None]
